FAERS Safety Report 9337965 (Version 2)
Quarter: 2013Q2

REPORT INFORMATION
  Report Type: Report from Study
  Country: JP (occurrence: JP)
  Receive Date: 20130609
  Receipt Date: 20130628
  Transmission Date: 20140414
  Serious: Yes (Other)
  Sender: FDA-Public Use
  Company Number: JP-009507513-1304JPN015943

PATIENT
  Age: 69 Year
  Sex: Male

DRUGS (67)
  1. FOSAPREPITANT DIMEGLUMINE [Suspect]
     Indication: PROPHYLAXIS OF NAUSEA AND VOMITING
     Dosage: 150 MG, ONCE
     Route: 042
     Dates: start: 20121113, end: 20121113
  2. FOSAPREPITANT DIMEGLUMINE [Suspect]
     Dosage: 150 MG, ONCE
     Route: 042
     Dates: start: 20121212, end: 20121212
  3. FOSAPREPITANT DIMEGLUMINE [Suspect]
     Dosage: 150 MG, ONCE
     Route: 042
     Dates: start: 20130115, end: 20130115
  4. FOSAPREPITANT DIMEGLUMINE [Suspect]
     Dosage: 150 MG, ONCE
     Route: 042
     Dates: start: 20130212, end: 20130212
  5. OPALMON [Concomitant]
     Dosage: 5 MICROGRAM, UNK
     Dates: start: 20121113, end: 20121117
  6. OPALMON [Concomitant]
     Dosage: 5 MICROGRAM, UNK
     Dates: start: 20121212, end: 20121216
  7. OPALMON [Concomitant]
     Dosage: 5 MICROGRAM, UNK
     Dates: start: 20130115, end: 20130119
  8. OPALMON [Concomitant]
     Dosage: 5 UNK, UNK
     Dates: start: 20130212, end: 20130216
  9. CISPLATIN [Concomitant]
     Dosage: 60 MG, UNK
     Dates: start: 20121113, end: 20121113
  10. CISPLATIN [Concomitant]
     Dosage: 88 MG, UNK
     Dates: start: 20121212, end: 20121212
  11. CISPLATIN [Concomitant]
     Dosage: 88 MG, UNK
     Dates: start: 20130115, end: 20130115
  12. CISPLATIN [Concomitant]
     Dosage: 70 MG, UNK
     Dates: start: 20130212, end: 20130212
  13. VEPESID [Concomitant]
     Dosage: 100 MG, UNK
     Dates: start: 20121113, end: 20121115
  14. VEPESID [Concomitant]
     Dosage: 110 MG, UNK
     Dates: start: 20121212, end: 20121214
  15. VEPESID [Concomitant]
     Dosage: 110 MG, UNK
     Dates: start: 20130115, end: 20130117
  16. VEPESID [Concomitant]
     Dosage: 88 MG, UNK
     Dates: start: 20130212, end: 20130214
  17. ALOXI [Concomitant]
     Dosage: UNK
     Dates: start: 20121113, end: 20121113
  18. ALOXI [Concomitant]
     Dosage: UNK
     Dates: start: 20121212, end: 20121212
  19. ALOXI [Concomitant]
     Dosage: UNK
     Dates: start: 20130115, end: 20130115
  20. ALOXI [Concomitant]
     Dosage: UNK
     Dates: start: 20130212, end: 20130212
  21. DECADRON PHOSPHATE INJECTION [Concomitant]
     Dosage: 6.6 MG, UNK
     Route: 048
     Dates: start: 20121113, end: 20121113
  22. DECADRON PHOSPHATE INJECTION [Concomitant]
     Dosage: 1.65 MG, UNK
     Route: 048
     Dates: start: 20121114, end: 20121115
  23. DECADRON PHOSPHATE INJECTION [Concomitant]
     Dosage: 4.95 MG, UNK
     Route: 048
     Dates: start: 20121212, end: 20121212
  24. DECADRON PHOSPHATE INJECTION [Concomitant]
     Dosage: 4.95 MG, UNK
     Route: 048
     Dates: start: 20130116, end: 20130117
  25. DECADRON PHOSPHATE INJECTION [Concomitant]
     Dosage: 4.95 MG, UNK
     Route: 048
     Dates: start: 20130213, end: 20130214
  26. DECADRON PHOSPHATE INJECTION [Concomitant]
     Dosage: 13.20 MG, UNK
     Route: 048
     Dates: start: 20130115, end: 20130115
  27. DECADRON PHOSPHATE INJECTION [Concomitant]
     Dosage: 13.20 MG, UNK
     Route: 048
     Dates: start: 20130212, end: 20130212
  28. PRIMPERAN [Concomitant]
     Dosage: 20 MG, UNK
     Dates: start: 20121212, end: 20121212
  29. PRIMPERAN [Concomitant]
     Dosage: 45 MG, UNK
     Dates: start: 20121215, end: 20121216
  30. PRIMPERAN [Concomitant]
     Dosage: 20 MG, UNK
     Dates: start: 20130115, end: 20130115
  31. PRIMPERAN [Concomitant]
     Dosage: 20 MG, UNK
     Dates: start: 20130213, end: 20130214
  32. PRIMPERAN [Concomitant]
     Dosage: 5 MG, UNK
     Dates: start: 20130215, end: 20130215
  33. PRIMPERAN [Concomitant]
     Dosage: 10 MG, UNK
     Dates: start: 20130216, end: 20130216
  34. MAGNESIUM SULFATE [Concomitant]
     Dosage: UNK
     Dates: start: 20121113, end: 20121113
  35. MAGNESIUM SULFATE [Concomitant]
     Dosage: UNK
     Dates: start: 20121212, end: 20121212
  36. MAGNESIUM SULFATE [Concomitant]
     Dosage: UNK
     Dates: start: 20130115, end: 20130115
  37. MAGNESIUM SULFATE [Concomitant]
     Dosage: UNK
     Dates: start: 20130212, end: 20130212
  38. MANNITOL [Concomitant]
     Dosage: UNK
     Dates: start: 20121113, end: 20121113
  39. MANNITOL [Concomitant]
     Dosage: UNK
     Dates: start: 20121212, end: 20121212
  40. MANNITOL [Concomitant]
     Dosage: UNK
     Dates: start: 20130115, end: 20130115
  41. MANNITOL [Concomitant]
     Dosage: UNK
     Dates: start: 20130212, end: 20130212
  42. MUCOSTA [Concomitant]
     Dosage: UNK
     Dates: start: 20121114, end: 20121114
  43. LOXONIN [Concomitant]
     Dosage: UNK
     Dates: start: 20121114, end: 20121117
  44. METHYCOBAL [Concomitant]
     Dosage: UNK
     Dates: start: 20121113, end: 20121117
  45. METHYCOBAL [Concomitant]
     Dosage: UNK
     Dates: start: 20121212, end: 20121216
  46. METHYCOBAL [Concomitant]
     Dosage: UNK
     Dates: start: 20130115, end: 20130119
  47. METHYCOBAL [Concomitant]
     Dosage: UNK
     Dates: start: 20130212, end: 20130216
  48. VITAMEDIN INTRAVENOUS [Concomitant]
     Dosage: UNK
     Dates: start: 20121113, end: 20121117
  49. VITAMEDIN INTRAVENOUS [Concomitant]
     Dosage: UNK
     Dates: start: 20121212, end: 20121216
  50. VITAMEDIN INTRAVENOUS [Concomitant]
     Dosage: UNK
     Dates: start: 20130115, end: 20130119
  51. VITAMEDIN INTRAVENOUS [Concomitant]
     Dosage: UNK
     Dates: start: 20130212, end: 20130216
  52. LASIX (FUROSEMIDE) [Concomitant]
     Dosage: UNK
     Dates: start: 20121115, end: 20121115
  53. LASIX (FUROSEMIDE) [Concomitant]
     Dosage: UNK
     Dates: start: 20130117, end: 20130117
  54. LASIX (FUROSEMIDE) [Concomitant]
     Dosage: UNK
     Dates: start: 20130213, end: 20130215
  55. PANTOSIN [Concomitant]
     Dosage: 300 MG, UNK
     Dates: start: 20121116, end: 20121117
  56. PANTOSIN [Concomitant]
     Dosage: 800 MG, UNK
     Dates: start: 20121212, end: 20121212
  57. PANTOSIN [Concomitant]
     Dosage: 600 MG, UNK
     Dates: start: 20120115, end: 20130119
  58. PANTOSIN [Concomitant]
     Dosage: 300 MG, UNK
     Dates: start: 20130212, end: 20130215
  59. MAGLAX [Concomitant]
     Dosage: 990 MG, UNK
     Dates: start: 20121116, end: 20121117
  60. MAGLAX [Concomitant]
     Dosage: 1320 MG
     Dates: start: 20121212, end: 20121212
  61. MAGLAX [Concomitant]
     Dosage: 990 MG, UNK
     Dates: start: 20130115, end: 20130119
  62. MAGLAX [Concomitant]
     Dosage: 990 MG, UNK
     Dates: start: 20130212, end: 20130215
  63. PURSENNID (SENNOSIDES) [Concomitant]
     Dosage: 12 MG, UNK
     Dates: start: 20121115, end: 20121115
  64. PURSENNID (SENNOSIDES) [Concomitant]
     Dosage: 24 MG, UNK
     Dates: start: 20121117, end: 20121117
  65. PURSENNID (SENNOSIDES) [Concomitant]
     Dosage: 24 MG, UNK
     Dates: start: 20121212, end: 20121212
  66. PURSENNID (SENNOSIDES) [Concomitant]
     Dosage: 24 MG, UNK
     Dates: start: 20130214, end: 20130214
  67. PURSENNID (SENNOSIDES) [Concomitant]
     Dosage: 12 MG, UNK
     Dates: start: 20130212, end: 20130212

REACTIONS (10)
  - Platelet count decreased [Recovered/Resolved]
  - Agranulocytosis [Recovered/Resolved]
  - Neutrophil count decreased [Recovered/Resolved]
  - Constipation [Unknown]
  - White blood cell count decreased [Recovered/Resolved]
  - Alopecia [Recovered/Resolved]
  - Anaemia [Not Recovered/Not Resolved]
  - Oedema [Recovered/Resolved]
  - Hiccups [Recovered/Resolved]
  - Dysphonia [Not Recovered/Not Resolved]
